FAERS Safety Report 8739751 (Version 2)
Quarter: 2012Q4

REPORT INFORMATION
  Report Type: Report from Study
  Country: US (occurrence: None)
  Receive Date: 20120807
  Receipt Date: 20120821
  Transmission Date: 20130627
  Serious: Yes (Hospitalization)
  Sender: FDA-Public Use
  Company Number: 2012SGN00330

PATIENT
  Age: 50 Year
  Sex: Female

DRUGS (19)
  1. BRENTUXIMAB VEDOTIN [Suspect]
     Indication: HODGKIN^S DISEASE
     Dosage: 1.2 MG/KG,
     Dates: start: 20120710, end: 20120710
  2. DOXORUBICIN [Suspect]
     Indication: HODGKIN^S DISEASE
     Dosage: 375 MG/M2,
     Dates: start: 20120710, end: 20120710
  3. VINBLASTINE SULFATE [Suspect]
     Indication: HODGKIN^S DISEASE
     Dosage: 6 MG/M2,
     Dates: start: 20120710, end: 20120710
  4. DACARBAZINE [Suspect]
     Indication: HODGKIN^S DISEASE
     Dosage: 25 MG/M2,
     Dates: start: 20120710, end: 20120710
  5. IBUPROFEN [Concomitant]
  6. DORZOLAMIDE W/TIMOLOL (DORZOLAMIDE WLTIMOLOL) EYE DROPS, [Concomitant]
  7. BRIMONIDINE TARTRATE (BRIMONIDINE TARTRATE) EYE DROPS, 0.15 % [Concomitant]
  8. OTHER AGENTS FOR LOCAL ORAL TREATMENT (BENEDRYL, LIDOCAINE, MAALOX) MOUTHWASH [Concomitant]
  9. MESALAMINE [Concomitant]
  10. NEUPOGEN [Concomitant]
  11. AMOXICILLIN W/CLAVULANIC ACID (AMOXICILLIN W/CLAVULANIC ACID) [Concomitant]
  12. CETIRIZINE (CETIRIZINE HYDROCHLORIDE) [Concomitant]
  13. COLACE (DOCUSATE SODIUM) [Concomitant]
  14. ESCITALOPRAM OXALATE [Concomitant]
  15. LORAZEPAM [Concomitant]
  16. OMEPRAZOLE [Concomitant]
  17. ZOFRAN [Concomitant]
  18. OXYCODONE HYDROCHLORIDE [Concomitant]
  19. ACYCLOVIR [Concomitant]

REACTIONS (1)
  - FEBRILE NEUTROPENIA [None]
